FAERS Safety Report 11671904 (Version 1)
Quarter: 2015Q4

REPORT INFORMATION
  Report Type: Spontaneous
  Country: US (occurrence: US)
  Receive Date: 20151028
  Receipt Date: 20151028
  Transmission Date: 20160304
  Serious: No
  Sender: FDA-Public Use
  Company Number: US-ASTRAZENECA-2015SE88553

PATIENT
  Sex: Male

DRUGS (1)
  1. PULMICORT FLEXHALER [Suspect]
     Active Substance: BUDESONIDE
     Dosage: 180 MCG, 2 PUFFS ONCE A DAY
     Route: 055

REACTIONS (5)
  - Drug dose omission [Unknown]
  - Nasopharyngitis [Unknown]
  - Product quality issue [Unknown]
  - Off label use [Unknown]
  - Drug administered to patient of inappropriate age [Not Recovered/Not Resolved]
